FAERS Safety Report 5861064-1 (Version None)
Quarter: 2008Q3

REPORT INFORMATION
  Report Type: 
  Country: None (occurrence: None)
  Receive Date: 20080826
  Receipt Date: 20080821
  Transmission Date: 20090109
  Serious: Yes (Other)
  Sender: FDA-Public Use
  Company Number: 2008SP015880

PATIENT
  Age: 51 Year
  Sex: Female

DRUGS (6)
  1. TEMODAR [Suspect]
     Indication: OLIGODENDROGLIOMA
     Dosage: 240 MG; QD; PO
     Route: 048
     Dates: start: 20080501, end: 20080505
  2. TRICOR [Concomitant]
  3. CELEXA [Concomitant]
  4. ACTONEL PLUS CALCIUM /02223601/ [Concomitant]
  5. DARVON [Concomitant]
  6. XANAX [Concomitant]

REACTIONS (1)
  - IDIOPATHIC THROMBOCYTOPENIC PURPURA [None]
